FAERS Safety Report 4637117-2 (Version None)
Quarter: 2005Q2

REPORT INFORMATION
  Report Type: 
  Country: None (occurrence: None)
  Receive Date: 20050325
  Receipt Date: 20041214
  Transmission Date: 20051028
  Serious: No
  Sender: FDA-Public Use
  Company Number: USA040773642

PATIENT
  Age: 58 Year
  Sex: Female
  Weight: 48 kg

DRUGS (2)
  1. FORTEO [Suspect]
     Indication: OSTEOPOROSIS
     Dosage: 20 UG/1 DAY
     Dates: start: 20040724
  2. HORMONES [Concomitant]

REACTIONS (4)
  - ASTHENIA [None]
  - INJECTION SITE PAIN [None]
  - MEDICATION ERROR [None]
  - OVERDOSE [None]
